FAERS Safety Report 8755905 (Version 6)
Quarter: 2013Q1

REPORT INFORMATION
  Report Type: Spontaneous
  Country: US (occurrence: US)
  Receive Date: 20120827
  Receipt Date: 20130117
  Transmission Date: 20140127
  Serious: Yes (Hospitalization, Disabling, Other)
  Sender: FDA-Public Use
  Company Number: US-009507513-1206USA04697

PATIENT
  Sex: 0

DRUGS (12)
  1. FOSAMAX [Suspect]
     Indication: OSTEOPOROSIS
     Dosage: 70 MG, QW
     Route: 048
  2. FOSAMAX [Suspect]
     Dosage: 10 MG, QD
     Route: 048
     Dates: start: 199511
  3. FOSAMAX [Suspect]
     Dosage: 40 MG, QD
     Dates: start: 199612
  4. FOSAMAX [Suspect]
     Dosage: 70 MG, Q2W
     Route: 048
  5. FOSAMAX [Suspect]
     Dosage: 30 MG, 6DAYS/W
     Route: 048
  6. FOSAMAX [Suspect]
     Dosage: 70 MG, UNK
     Route: 048
     Dates: end: 20070921
  7. ALENDRONATE SODIUM [Suspect]
     Indication: OSTEOPOROSIS
     Dosage: 70 MG, UNK
     Route: 048
     Dates: start: 20090104
  8. VITAMINS (UNSPECIFIED) [Concomitant]
     Dosage: UNK, QD
     Dates: start: 1993
  9. VITAMIN D (UNSPECIFIED) [Concomitant]
     Dosage: UNK, QD
     Dates: start: 1993
  10. CALCIUM (UNSPECIFIED) [Concomitant]
     Dosage: UNK, QD
     Dates: start: 1993
  11. CYANOCOBALAMIN [Concomitant]
     Dosage: UNK
     Dates: start: 1993
  12. HORMONES (UNSPECIFIED) [Concomitant]
     Dosage: UNK
     Dates: start: 1977, end: 1995

REACTIONS (85)
  - Femur fracture [Unknown]
  - Osteoporosis [Not Recovered/Not Resolved]
  - Stress fracture [Unknown]
  - Fall [Unknown]
  - Femur fracture [Unknown]
  - Tibia fracture [Unknown]
  - Femur fracture [Unknown]
  - Femur fracture [Unknown]
  - Surgery [Unknown]
  - Surgery [Unknown]
  - Open reduction of fracture [Unknown]
  - Open reduction of fracture [Unknown]
  - Bone graft [Unknown]
  - Open reduction of fracture [Unknown]
  - Internal fixation of fracture [Unknown]
  - Internal fixation of fracture [Unknown]
  - Medical device removal [Unknown]
  - Medical device removal [Unknown]
  - Internal fixation of fracture [Unknown]
  - Bone graft [Unknown]
  - Femur fracture [Unknown]
  - Hip fracture [Unknown]
  - Hip fracture [Unknown]
  - Salpingo-oophorectomy unilateral [Unknown]
  - Internal fixation of fracture [Unknown]
  - Femur fracture [Unknown]
  - Patella fracture [Unknown]
  - Foot fracture [Unknown]
  - Bone density decreased [Unknown]
  - Hip fracture [Unknown]
  - Open reduction of fracture [Unknown]
  - Internal fixation of fracture [Unknown]
  - Hip fracture [Unknown]
  - Hip fracture [Unknown]
  - Femoral neck fracture [Unknown]
  - Internal fixation of fracture [Unknown]
  - Device failure [Unknown]
  - Spinal disorder [Unknown]
  - Artificial crown procedure [Unknown]
  - Gait disturbance [Unknown]
  - Spinal compression fracture [Unknown]
  - Device failure [Unknown]
  - Foot fracture [Unknown]
  - Fall [Unknown]
  - Osteopenia [Unknown]
  - Bone disorder [Unknown]
  - Body height decreased [Unknown]
  - Osteosclerosis [Unknown]
  - Osteoarthritis [Unknown]
  - Uterine cyst [Unknown]
  - Artificial crown procedure [Unknown]
  - Endodontic procedure [Unknown]
  - Adnexa uteri cyst [Unknown]
  - Foot deformity [Unknown]
  - Limb asymmetry [Unknown]
  - Tendon injury [Unknown]
  - Foot fracture [Unknown]
  - Endodontic procedure [Unknown]
  - Upper limb fracture [Unknown]
  - Joint dislocation [Unknown]
  - Radius fracture [Unknown]
  - Patella fracture [Unknown]
  - Lumbar vertebral fracture [Unknown]
  - Spinal compression fracture [Unknown]
  - Fall [Unknown]
  - Kyphosis [Unknown]
  - Inappropriate schedule of drug administration [Unknown]
  - Dupuytren^s contracture [Unknown]
  - Inappropriate schedule of drug administration [Unknown]
  - Goitre [Unknown]
  - Ovarian cyst [Unknown]
  - Exostosis [Unknown]
  - Osteoarthritis [Unknown]
  - Ligament disorder [Unknown]
  - Urinary tract infection [Unknown]
  - Hyperkeratosis [Unknown]
  - Arthropathy [Unknown]
  - Arthropathy [Unknown]
  - Overdose [Unknown]
  - Overdose [Unknown]
  - Joint swelling [Unknown]
  - Arthralgia [Unknown]
  - Arthralgia [Unknown]
  - Abdominal discomfort [Unknown]
  - Drug ineffective [Unknown]
